FAERS Safety Report 6299631-6 (Version None)
Quarter: 2009Q3

REPORT INFORMATION
  Report Type: 
  Country: None (occurrence: None)
  Receive Date: 20090806
  Receipt Date: 20090802
  Transmission Date: 20100115
  Serious: Yes (Other)
  Sender: FDA-Public Use
  Company Number: JP-GENENTECH-288005

PATIENT
  Sex: Male

DRUGS (9)
  1. RITUXAN [Suspect]
     Indication: DIFFUSE LARGE B-CELL LYMPHOMA
     Dosage: 550 MG, UNK
     Route: 042
     Dates: start: 20090626, end: 20090626
  2. POLARAMINE [Concomitant]
     Indication: PREMEDICATION
     Dosage: 5 MG, SINGLE
     Route: 042
     Dates: start: 20090626
  3. KETOPROFEN [Concomitant]
     Indication: PREMEDICATION
     Dosage: 50 MG, SINGLE
     Route: 042
     Dates: start: 20090626
  4. DEXAMETHASONE SODIUM PHOSPHATE [Concomitant]
     Indication: PREMEDICATION
     Dosage: 40 MG, SINGLE
     Route: 042
     Dates: start: 20090626
  5. ALLOPURINOL [Concomitant]
     Indication: PROPHYLAXIS
     Dosage: 3 TABLET, QD
     Route: 048
     Dates: start: 20090626
  6. POTASSIUM CITRATE [Concomitant]
     Indication: PROPHYLAXIS
     Dosage: 6 TABLET, QD
     Route: 048
     Dates: start: 20090626
  7. MUCOSTA [Concomitant]
     Indication: PROPHYLAXIS
     Dosage: 300 MG, QD
     Route: 048
     Dates: start: 20090626
  8. NEUQUINON [Concomitant]
     Indication: PROPHYLAXIS
     Dosage: 30 MG, QD
     Route: 048
     Dates: start: 20090626
  9. MEYLON (JAPAN) [Concomitant]
     Indication: PROPHYLAXIS
     Dosage: 40 ML, UNK
     Dates: start: 20090626

REACTIONS (2)
  - HAEMOLYTIC ANAEMIA [None]
  - PLATELET COUNT DECREASED [None]
